FAERS Safety Report 7013086-5 (Version None)
Quarter: 2010Q3

REPORT INFORMATION
  Report Type: 
  Country: None (occurrence: None)
  Receive Date: 20100924
  Receipt Date: 20100913
  Transmission Date: 20110219
  Serious: Yes (Other)
  Sender: FDA-Public Use
  Company Number: US-PFIZER INC-2010116269

PATIENT
  Sex: Male

DRUGS (4)
  1. VIAGRA [Suspect]
     Indication: ERECTILE DYSFUNCTION
     Dosage: 25 MG, AS NEEDED
     Dates: start: 20080601
  2. VIAGRA [Suspect]
     Dosage: 50 MG, UNK
     Dates: start: 20090801
  3. VIAGRA [Suspect]
     Dosage: 50 MG, UNK
     Dates: start: 20100801
  4. VIAGRA [Suspect]
     Dosage: 100 MG, UNK
     Dates: start: 20100201

REACTIONS (1)
  - BLOOD PRESSURE FLUCTUATION [None]
